FAERS Safety Report 25708215 (Version 4)
Quarter: 2025Q4

REPORT INFORMATION
  Report Type: Report from Study
  Country: KR (occurrence: KR)
  Receive Date: 20250821
  Receipt Date: 20251205
  Transmission Date: 20260118
  Serious: Yes (Death, Hospitalization, Other)
  Sender: ABBVIE
  Company Number: KR-ABBVIE-6421744

PATIENT
  Age: 77 Year
  Sex: Female
  Weight: 66 kg

DRUGS (26)
  1. VENCLEXTA [Suspect]
     Active Substance: VENETOCLAX
     Indication: Acute myeloid leukaemia
     Route: 048
     Dates: start: 20250301, end: 20250325
  2. VENCLEXTA [Suspect]
     Active Substance: VENETOCLAX
     Indication: Acute myeloid leukaemia
     Route: 048
     Dates: start: 20250227, end: 20250227
  3. VENCLEXTA [Suspect]
     Active Substance: VENETOCLAX
     Indication: Acute myeloid leukaemia
     Route: 048
     Dates: start: 20250226, end: 20250226
  4. VENCLEXTA [Suspect]
     Active Substance: VENETOCLAX
     Indication: Acute myeloid leukaemia
     Route: 048
     Dates: start: 20250228, end: 20250228
  5. SMOFLIPID [Concomitant]
     Active Substance: FISH OIL\MEDIUM-CHAIN TRIGLYCERIDES\OLIVE OIL\SOYBEAN OIL
     Indication: Nutritional supplementation
     Dosage: 20% INJ 500ML,EVERY OTHER DAY
     Route: 042
     Dates: start: 20250411, end: 20250519
  6. SMOFLIPID [Concomitant]
     Active Substance: FISH OIL\MEDIUM-CHAIN TRIGLYCERIDES\OLIVE OIL\SOYBEAN OIL
     Indication: Nutritional supplementation
     Dosage: 20% INJ 500ML,EVERY OTHER DAY
     Route: 042
     Dates: start: 20250304, end: 20250327
  7. Meckool [Concomitant]
     Indication: Nausea
     Dosage: TIME INTERVAL: 0.33333333 DAYS
     Route: 042
     Dates: start: 20250304, end: 20250328
  8. POTASSIUM CHLORIDE [Concomitant]
     Active Substance: POTASSIUM CHLORIDE
     Indication: Hypokalaemia
     Dosage: CHOONGWAE INJ 20ML,PRN
     Route: 042
     Dates: start: 20250412, end: 20250519
  9. POTASSIUM CHLORIDE [Concomitant]
     Active Substance: POTASSIUM CHLORIDE
     Indication: Hypokalaemia
     Dosage: CHOONGWAE  INJ 20ML,PRN
     Route: 042
     Dates: start: 20250306, end: 20250308
  10. Zoylex [Concomitant]
     Indication: Infection prophylaxis
     Route: 048
     Dates: start: 20250226, end: 20250514
  11. Ondant [Concomitant]
     Indication: Nausea
     Dosage: INJ 8MG
     Route: 042
     Dates: start: 20250304, end: 20250304
  12. M-cobal [Concomitant]
     Indication: Neurotoxicity
     Dosage: CAP 500MCG
     Route: 048
     Dates: start: 20250226, end: 20250401
  13. Yuhan vitamin c [Concomitant]
     Indication: Product used for unknown indication
     Route: 048
     Dates: start: 20250226, end: 20250401
  14. FREAMINE III NOS [Concomitant]
     Active Substance: AMINO ACIDS
     Indication: Nutritional supplementation
     Dosage: 10% INJ 500ML (BAG), EVERY OTHER DAY
     Route: 042
     Dates: start: 20250305, end: 20250328
  15. FREAMINE III NOS [Concomitant]
     Active Substance: AMINO ACIDS
     Indication: Nutritional supplementation
     Dosage: 10% INJ 500ML (BAG), EVERY OTHER DAY
     Route: 042
     Dates: start: 20250412, end: 20250518
  16. Immunocin alpha [Concomitant]
     Indication: Infection
     Dosage: UNIT DOSE: 1VIAL GC WELLBEING
     Route: 058
     Dates: start: 20250226, end: 20250226
  17. NOXAFIL [Concomitant]
     Active Substance: POSACONAZOLE
     Indication: Infection prophylaxis
     Dosage: GASTRO RESISTANT TAB 100MG
     Route: 048
     Dates: start: 20250226, end: 20250401
  18. Sinil folic acid [Concomitant]
     Indication: Nutritional supplementation
     Dosage: TAB 1MG
     Route: 048
     Dates: start: 20250226, end: 20250401
  19. MEGACE [Concomitant]
     Active Substance: MEGESTROL ACETATE
     Indication: Decreased appetite
     Dosage: ORAL SUSP 10ML
     Route: 048
     Dates: start: 20250307, end: 20250401
  20. LEVOFLOXACIN [Concomitant]
     Active Substance: LEVOFLOXACIN
     Indication: Infection prophylaxis
     Dosage: TAB 500MG
     Route: 048
     Dates: start: 20250226, end: 20250409
  21. NORVASC [Concomitant]
     Active Substance: AMLODIPINE BESYLATE
     Indication: Hypertension
     Route: 048
     Dates: start: 20241230, end: 20250514
  22. Sinil pyridoxine [Concomitant]
     Indication: Prophylaxis
     Route: 048
     Dates: start: 20250226, end: 20250401
  23. Debikin [Concomitant]
     Indication: Acute myeloid leukaemia
     Route: 042
     Dates: start: 20250226, end: 20250302
  24. LASIX [Concomitant]
     Active Substance: FUROSEMIDE
     Indication: Oedema
     Dosage: PRN
     Route: 042
     Dates: start: 20250410, end: 20250519
  25. BUTYLSCOPOLAMINE BROMIDE [Concomitant]
     Active Substance: BUTYLSCOPOLAMINE BROMIDE
     Indication: Nausea
     Dosage: TIME INTERVAL: 0.33333333 DAYS: SUGAR-COATED TABLETS
     Route: 048
     Dates: start: 20250304, end: 20250401
  26. SCD Magnesium oxide [Concomitant]
     Indication: Constipation
     Dosage: TIME INTERVAL: 0.33333333 DAYS
     Route: 048
     Dates: start: 20250324, end: 20250414

REACTIONS (2)
  - Febrile neutropenia [Fatal]
  - Pneumonia [Fatal]

NARRATIVE: CASE EVENT DATE: 20250407
